FAERS Safety Report 12297150 (Version 1)
Quarter: 2016Q2

REPORT INFORMATION
  Report Type: Spontaneous
  Country: US (occurrence: US)
  Receive Date: 20160422
  Receipt Date: 20160422
  Transmission Date: 20160815
  Serious: Yes (Hospitalization, Other)
  Sender: FDA-Public Use
  Company Number: US-COVIS PHARMA S.A.R.L.-2016COV00005

PATIENT
  Sex: Male
  Weight: 82.99 kg

DRUGS (2)
  1. UNSPECIFIED PRODUCTS FOR HEART, STOMACH, BLOOD THINNING, AND DIABETES [Concomitant]
  2. SOTALOL. [Suspect]
     Active Substance: SOTALOL
     Indication: CARDIOVERSION
     Dosage: UNK UNK, 2X/DAY
     Route: 048
     Dates: start: 201503, end: 201507

REACTIONS (8)
  - Cardioversion [Recovered/Resolved]
  - Drug interaction [Recovered/Resolved]
  - Syncope [Recovered/Resolved]
  - Pain in extremity [Recovered/Resolved]
  - Diarrhoea [Recovered/Resolved]
  - Blood potassium decreased [Recovered/Resolved]
  - Dizziness [Recovered/Resolved]
  - Blood magnesium decreased [Recovered/Resolved]

NARRATIVE: CASE EVENT DATE: 2015
